FAERS Safety Report 4762258-9 (Version None)
Quarter: 2005Q3

REPORT INFORMATION
  Report Type: 
  Country: None (occurrence: None)
  Receive Date: 20050901
  Receipt Date: 20050516
  Transmission Date: 20060218
  Serious: No
  Sender: FDA-Public Use
  Company Number: 200510979BWH

PATIENT
  Age: 57 Year
  Sex: Male
  Weight: 129.2752 kg

DRUGS (6)
  1. LEVITRA [Suspect]
     Indication: SEXUAL DYSFUNCTION
     Dosage: 20 MG, BIW, ORAL;  QD, ORAL
     Route: 048
     Dates: start: 20050509
  2. LEVITRA [Suspect]
     Indication: SURGERY
     Dosage: 20 MG, BIW, ORAL;  QD, ORAL
     Route: 048
     Dates: start: 20050509
  3. LEVITRA [Suspect]
     Indication: SEXUAL DYSFUNCTION
     Dosage: 20 MG, BIW, ORAL;  QD, ORAL
     Route: 048
     Dates: start: 20050510
  4. LEVITRA [Suspect]
     Indication: SURGERY
     Dosage: 20 MG, BIW, ORAL;  QD, ORAL
     Route: 048
     Dates: start: 20050510
  5. PAXIL [Concomitant]
  6. VIAGRA [Concomitant]

REACTIONS (1)
  - ERECTILE DYSFUNCTION [None]
